FAERS Safety Report 4836059-7 (Version None)
Quarter: 2005Q4

REPORT INFORMATION
  Report Type: 
  Country: None (occurrence: None)
  Receive Date: 20051121
  Receipt Date: 20051121
  Transmission Date: 20060501
  Serious: Yes (Hospitalization)
  Sender: FDA-Public Use
  Company Number: None

PATIENT
  Age: 47 Year
  Sex: Male
  Weight: 81.1939 kg

DRUGS (1)
  1. PACLITAXEL [Suspect]
     Indication: TONSIL CANCER
     Dosage: 120 MG ONE TIME IV
     Route: 042
     Dates: start: 20051114, end: 20051114

REACTIONS (3)
  - CHEST PAIN [None]
  - DRUG HYPERSENSITIVITY [None]
  - FLUSHING [None]
